FAERS Safety Report 4310905-8 (Version None)
Quarter: 2004Q1

REPORT INFORMATION
  Report Type: 
  Country: None (occurrence: None)
  Receive Date: 20040302
  Receipt Date: 20030804
  Transmission Date: 20041129
  Serious: Yes (Hospitalization)
  Sender: FDA-Public Use
  Company Number: M2004.0068

PATIENT
  Age: 54 Year
  Sex: Female

DRUGS (1)
  1. DICLOFENAC SLOW RELEASE 50MG, SANDOZ GMBH MFR. [Suspect]
     Indication: ARTHRALGIA
     Dosage: P.O.
     Route: 048

REACTIONS (8)
  - ABDOMINAL PAIN LOWER [None]
  - BIOPSY COLON ABNORMAL [None]
  - FAECAL OCCULT BLOOD POSITIVE [None]
  - ILEAL STENOSIS [None]
  - IRON DEFICIENCY ANAEMIA [None]
  - ISCHAEMIC ULCER [None]
  - MICROCYTIC ANAEMIA [None]
  - SERUM FERRITIN DECREASED [None]
